FAERS Safety Report 5036279-5 (Version None)
Quarter: 2006Q2

REPORT INFORMATION
  Report Type: 
  Country: None (occurrence: None)
  Receive Date: 20060601
  Receipt Date: 20060502
  Transmission Date: 20061013
  Serious: No
  Sender: FDA-Public Use
  Company Number: US200605000511

PATIENT
  Age: 33 Year
  Sex: Female

DRUGS (4)
  1. CYMBALTA [Suspect]
     Dosage: 30 MG, DAILY (1/D), ORAL
     Route: 048
     Dates: end: 20050706
  2. ZOLOFT /USA/ (SERTRALINE) [Concomitant]
  3. CELEXA [Concomitant]
  4. BENADRYL ^PARKE DAVIS^ /ISR/ (DIPHENHYDRAMINE HYDROCHLORIDE) [Concomitant]

REACTIONS (2)
  - ARRESTED LABOUR [None]
  - DRUG EXPOSURE DURING PREGNANCY [None]
